FAERS Safety Report 4439073-9 (Version None)
Quarter: 2004Q3

REPORT INFORMATION
  Report Type: 
  Country: None (occurrence: None)
  Receive Date: 20040901
  Receipt Date: 20040823
  Transmission Date: 20050211
  Serious: Yes (Other)
  Sender: FDA-Public Use
  Company Number: SE-GLAXOSMITHKLINE-B0343789A

PATIENT
  Age: 19 Year
  Sex: Male

DRUGS (6)
  1. ZINACEF [Suspect]
     Indication: PNEUMONIA ASPIRATION
     Dates: start: 20040413, end: 20040413
  2. PRIMPERAN INJ [Concomitant]
  3. STESOLID [Concomitant]
  4. NITRAZEPAM [Concomitant]
  5. HERMOLEPSIN [Concomitant]
  6. LOSEC [Concomitant]

REACTIONS (3)
  - ANAPHYLACTIC SHOCK [None]
  - BLOOD PRESSURE DECREASED [None]
  - RASH [None]
